FAERS Safety Report 5472430-0 (Version None)
Quarter: 2007Q3

REPORT INFORMATION
  Report Type: 
  Country: None (occurrence: None)
  Receive Date: 20070927
  Receipt Date: 20070619
  Transmission Date: 20080115
  Serious: Yes (Hospitalization)
  Sender: FDA-Public Use
  Company Number: 865#9#2007-00007

PATIENT
  Age: 62 Year
  Sex: Male

DRUGS (14)
  1. ROTIGOTINE (DOSE UNKNOWN), PATCH (SILICONE) (ROTIGOTINE) [Suspect]
     Indication: PARKINSON'S DISEASE
     Dosage: SEE IMAGE
     Route: 062
     Dates: start: 20070522, end: 20070528
  2. ROTIGOTINE (DOSE UNKNOWN), PATCH (SILICONE) (ROTIGOTINE) [Suspect]
     Indication: PARKINSON'S DISEASE
     Dosage: SEE IMAGE
     Route: 062
     Dates: start: 20070529, end: 20070601
  3. ROTIGOTINE (DOSE UNKNOWN), PATCH (SILICONE) (ROTIGOTINE) [Suspect]
     Indication: PARKINSON'S DISEASE
     Dosage: SEE IMAGE
     Route: 062
     Dates: start: 20070602, end: 20070611
  4. ROTIGOTINE (DOSE UNKNOWN), PATCH (SILICONE) (ROTIGOTINE) [Suspect]
     Indication: PARKINSON'S DISEASE
     Dosage: SEE IMAGE
     Route: 062
     Dates: start: 20070612, end: 20070615
  5. ROTIGOTINE (DOSE UNKNOWN), PATCH (SILICONE) (ROTIGOTINE) [Suspect]
     Indication: PARKINSON'S DISEASE
     Dosage: SEE IMAGE
     Route: 062
     Dates: start: 20070616, end: 20070617
  6. BIPERIDEN HYDROCHLORIDE TAB [Suspect]
     Indication: PARKINSON'S DISEASE
     Dosage: 1 MG ORAL
     Route: 048
     Dates: start: 20061004, end: 20070616
  7. QUETIAPINE FUMARATE [Suspect]
     Dosage: 25 MG
     Dates: start: 20070618, end: 20070619
  8. MIDODRINE HYDROCHLORIDE (MIDODRINE HYDROCHLORIDE) [Concomitant]
  9. PAROXETINE HCL [Concomitant]
  10. PROPIVERINE HYDROCHLORIDE (PROPIVERINE HYDROCHLORIDE) [Concomitant]
  11. LEVODOPA-CARBIDOPA (CARBIDOPA, LEVODOPA) [Concomitant]
  12. CLONAZEPAM [Concomitant]
  13. OLANZAPINE [Concomitant]
  14. FLUID REPLACEMENT [Concomitant]

REACTIONS (4)
  - DELUSION [None]
  - HALLUCINATION, AUDITORY [None]
  - NEUROLEPTIC MALIGNANT SYNDROME [None]
  - REFUSAL OF TREATMENT BY PATIENT [None]
